FAERS Safety Report 9168069 (Version 1)
Quarter: 2013Q1

REPORT INFORMATION
  Report Type: Spontaneous
  Country: RO (occurrence: None)
  Receive Date: 20130307
  Receipt Date: 20130307
  Transmission Date: 20140127
  Serious: Yes (Hospitalization)
  Sender: FDA-Public Use
  Company Number: AUR-APL-2013-01886

PATIENT
  Age: 68 Year
  Sex: 0

DRUGS (3)
  1. SIMVASTATIN (SIMVASTATIN) [Suspect]
     Indication: PRODUCT USED FOR UNKNOWN INDICATION
     Dosage: 20 MG (20 MG, 1 IN 1 D) UNK
  2. SIMVASTATIN (SIMVASTATIN) [Suspect]
     Indication: PRODUCT USED FOR UNKNOWN INDICATION
     Dosage: 20 MG (20 MG, 1 IN 1 D) UNK
  3. FENOFIBRATE [Suspect]

REACTIONS (6)
  - Cholestasis [None]
  - Muscular weakness [None]
  - Myalgia [None]
  - Drug interaction [None]
  - Chest pain [None]
  - Blood creatine phosphokinase increased [None]
